FAERS Safety Report 13452488 (Version 1)
Quarter: 2017Q2

REPORT INFORMATION
  Report Type: Spontaneous
  Country: US (occurrence: US)
  Receive Date: 20170418
  Receipt Date: 20170418
  Transmission Date: 20170830
  Serious: No
  Sender: FDA-Public Use
  Company Number: US-TEVA-671859USA

PATIENT
  Age: 60 Year
  Sex: Female
  Weight: 99.88 kg

DRUGS (1)
  1. WARFARIN [Suspect]
     Active Substance: WARFARIN
     Indication: ANTIPHOSPHOLIPID ANTIBODIES
     Dates: start: 20160601

REACTIONS (3)
  - Urticaria [Not Recovered/Not Resolved]
  - Eye swelling [Unknown]
  - Rash [Not Recovered/Not Resolved]

NARRATIVE: CASE EVENT DATE: 201606
